FAERS Safety Report 20875223 (Version 4)
Quarter: 2022Q3

REPORT INFORMATION
  Report Type: Report from Study
  Country: CA (occurrence: CA)
  Receive Date: 20220526
  Receipt Date: 20220823
  Transmission Date: 20221027
  Serious: Yes (Other)
  Sender: FDA-Public Use
  Company Number: CA-BIOGEN-2022BI01125475

PATIENT
  Age: 51 Year
  Sex: Female

DRUGS (2)
  1. TECFIDERA [Suspect]
     Active Substance: DIMETHYL FUMARATE
     Indication: Multiple sclerosis
     Route: 050
     Dates: start: 20140728
  2. TECFIDERA [Suspect]
     Active Substance: DIMETHYL FUMARATE
     Route: 050
     Dates: start: 20140728

REACTIONS (1)
  - Triple negative breast cancer [Unknown]

NARRATIVE: CASE EVENT DATE: 20220301
